FAERS Safety Report 6400560-5 (Version None)
Quarter: 2009Q4

REPORT INFORMATION
  Report Type: 
  Country: None (occurrence: None)
  Receive Date: 20091013
  Receipt Date: 20091013
  Transmission Date: 20100525
  Serious: No
  Sender: FDA-Public Use
  Company Number: None

PATIENT
  Age: 50 Year
  Sex: Male
  Weight: 135.5 kg

DRUGS (1)
  1. CHANTIX 1MG TABLET PFL PHIZER US PHARM [Suspect]
     Indication: SMOKING CESSATION THERAPY
     Dosage: 1 MG Q12HRS ORAL
     Route: 048
     Dates: start: 20090904, end: 20090910

REACTIONS (2)
  - ANGER [None]
  - ANXIETY [None]
